FAERS Safety Report 9718056 (Version 2)
Quarter: 2013Q4

REPORT INFORMATION
  Report Type: Spontaneous
  Country: US (occurrence: None)
  Receive Date: 20131125
  Receipt Date: 20131203
  Transmission Date: 20140711
  Serious: Yes (Other)
  Sender: FDA-Public Use
  Company Number: 2013SA120395

PATIENT
  Sex: Female

DRUGS (1)
  1. CAPZASIN NO MESS APPLICATOR [Suspect]
     Indication: ARTHRITIS
     Dates: start: 20131115

REACTIONS (2)
  - Application site pain [None]
  - Application site erythema [None]
